FAERS Safety Report 10168564 (Version 2)
Quarter: 2014Q2

REPORT INFORMATION
  Report Type: Report from Study
  Country: CA (occurrence: CA)
  Receive Date: 20140513
  Receipt Date: 20140623
  Transmission Date: 20141212
  Serious: Yes (Other)
  Sender: FDA-Public Use
  Company Number: CA-JNJFOC-20140502694

PATIENT
  Age: 31 Year
  Sex: Male
  Weight: 68.5 kg

DRUGS (2)
  1. REMICADE [Suspect]
     Indication: CROHN^S DISEASE
     Route: 042
     Dates: start: 20080327
  2. METHADONE [Concomitant]
     Route: 065

REACTIONS (1)
  - Cholelithiasis [Recovered/Resolved]
